FAERS Safety Report 8098787-2 (Version None)
Quarter: 2012Q1

REPORT INFORMATION
  Report Type: 
  Country: None (occurrence: None)
  Receive Date: 20120131
  Receipt Date: 20120123
  Transmission Date: 20120608
  Serious: Yes (Hospitalization)
  Sender: FDA-Public Use
  Company Number: US-CELGENEUS-163-21880-11121029

PATIENT
  Sex: Male

DRUGS (10)
  1. LYRICA [Concomitant]
     Dosage: 50 MILLIGRAM
     Route: 065
  2. NORCO [Concomitant]
     Dosage: 5/325
     Route: 065
  3. ARMODAFINIL [Concomitant]
     Dosage: 100 MILLIGRAM
     Route: 065
  4. ACYCLOVIR [Concomitant]
     Dosage: 400 MILLIGRAM
     Route: 065
  5. LASIX [Concomitant]
     Dosage: 20 MILLIGRAM
     Route: 065
  6. BYSTOLIC [Concomitant]
     Dosage: 2.5 MILLIGRAM
     Route: 065
  7. REVLIMID [Suspect]
     Indication: MULTIPLE MYELOMA
     Dosage: 10 MILLIGRAM
     Route: 048
     Dates: start: 20100201, end: 20111123
  8. DECADRON [Concomitant]
     Indication: MULTIPLE MYELOMA
     Dosage: 20 MILLIGRAM
     Route: 048
  9. LEVAQUIN [Concomitant]
     Route: 048
  10. POTASSIUM [Concomitant]
     Dosage: 10 MILLIEQUIVALENTS
     Route: 065

REACTIONS (1)
  - CHRONIC OBSTRUCTIVE PULMONARY DISEASE [None]
